FAERS Safety Report 5834439-4 (Version None)
Quarter: 2008Q3

REPORT INFORMATION
  Report Type: 
  Country: None (occurrence: None)
  Receive Date: 20080805
  Receipt Date: 20080731
  Transmission Date: 20090109
  Serious: Yes (Other)
  Sender: FDA-Public Use
  Company Number: US-BOEHRINGER INGELHEIM GMBH, GERMANY-2008-BP-12011RO

PATIENT
  Age: 11 Month

DRUGS (4)
  1. PREDNISONE TAB [Suspect]
     Indication: INFANTILE SPASMS
  2. ACTH [Suspect]
     Indication: INFANTILE SPASMS
  3. CALCIUM [Suspect]
     Indication: INFANTILE SPASMS
  4. REHYDRATION [Concomitant]
     Indication: HYPERCALCAEMIA

REACTIONS (1)
  - HYPERCALCAEMIA [None]
